FAERS Safety Report 24291857 (Version 1)
Quarter: 2024Q3

REPORT INFORMATION
  Report Type: Spontaneous
  Country: NL (occurrence: None)
  Receive Date: 20240906
  Receipt Date: 20240906
  Transmission Date: 20241016
  Serious: Yes (Other)
  Sender: ASTRAZENECA
  Company Number: 2024A199169

PATIENT
  Age: 51 Year
  Sex: Male
  Weight: 80 kg

DRUGS (2)
  1. DAPAGLIFLOZIN [Suspect]
     Active Substance: DAPAGLIFLOZIN
     Indication: Cardiac failure
     Dosage: 1X PER DAG 1 STUK
     Dates: start: 20230924, end: 20240813
  2. ECZORIA [Concomitant]
     Dosage: CREME, 0,5 MG/G (MILLIGRAM PER GRAM)

REACTIONS (3)
  - Phimosis [Recovering/Resolving]
  - Penile discharge [Recovering/Resolving]
  - Dry skin [Recovering/Resolving]
